FAERS Safety Report 10785578 (Version 2)
Quarter: 2015Q1

REPORT INFORMATION
  Report Type: Spontaneous
  Country: DE (occurrence: None)
  Receive Date: 20150209
  Receipt Date: 20150319
  Transmission Date: 20150721
  Serious: Yes (Other)
  Sender: FDA-Public Use
  Company Number: HRA-CDB20140255

PATIENT
  Age: 36 Year
  Sex: Female

DRUGS (1)
  1. ELLAONE 30 MG TABLETTE (ELLAONE) (ULIPRISTAL ACETATE) [Suspect]
     Active Substance: ULIPRISTAL ACETATE
     Indication: POST COITAL CONTRACEPTION
     Dates: start: 20141130, end: 20141130

REACTIONS (6)
  - Pregnancy after post coital contraception [None]
  - Abortion spontaneous [None]
  - Foetal growth restriction [None]
  - Abortion induced [None]
  - Maternal exposure before pregnancy [None]
  - Foetal heart rate abnormal [None]

NARRATIVE: CASE EVENT DATE: 2014
